FAERS Safety Report 9610515 (Version 1)
Quarter: 2013Q4

REPORT INFORMATION
  Report Type: Report from Study
  Country: US (occurrence: US)
  Receive Date: 20131009
  Receipt Date: 20131009
  Transmission Date: 20140711
  Serious: Yes (Hospitalization)
  Sender: FDA-Public Use
  Company Number: US-ABBVIE-13P-163-1153299-00

PATIENT
  Age: 69 Year
  Sex: Female
  Weight: 63.56 kg

DRUGS (5)
  1. HUMIRA [Suspect]
     Indication: COLITIS ULCERATIVE
     Dates: start: 20130610, end: 20130610
  2. HUMIRA [Suspect]
     Dates: start: 20130624, end: 20130624
  3. HUMIRA [Suspect]
     Indication: COLITIS ULCERATIVE
     Dates: start: 201307, end: 201308
  4. ASACOL HD [Concomitant]
     Indication: COLITIS ULCERATIVE
  5. PREDNISONE [Concomitant]
     Indication: COLITIS ULCERATIVE

REACTIONS (5)
  - Thrombosis [Recovered/Resolved]
  - Pancreatitis [Recovered/Resolved]
  - Cholelithiasis [Recovered/Resolved]
  - Clostridium difficile infection [Recovered/Resolved]
  - Pleural effusion [Recovered/Resolved]
